FAERS Safety Report 7280693-4 (Version None)
Quarter: 2011Q1

REPORT INFORMATION
  Report Type: 
  Country: None (occurrence: None)
  Receive Date: 20110208
  Receipt Date: 20110131
  Transmission Date: 20110831
  Serious: Yes (Other)
  Sender: FDA-Public Use
  Company Number: A0912110A

PATIENT
  Age: 19 Year
  Sex: Female

DRUGS (3)
  1. IMMUNE GLOBULIN INTRAVENOUS (HUMAN) [Concomitant]
  2. PROMACTA [Suspect]
     Indication: IDIOPATHIC THROMBOCYTOPENIC PURPURA
     Route: 048
     Dates: start: 20100830
  3. CORTICOSTEROIDS [Concomitant]

REACTIONS (3)
  - DIZZINESS [None]
  - HAEMATURIA [None]
  - GINGIVAL BLEEDING [None]
